FAERS Safety Report 7814992-1 (Version None)
Quarter: 2011Q4

REPORT INFORMATION
  Report Type: 
  Country: None (occurrence: None)
  Receive Date: 20111014
  Receipt Date: 20111007
  Transmission Date: 20120403
  Serious: Yes (Other)
  Sender: FDA-Public Use
  Company Number: CA-GLAXOSMITHKLINE-A0948039A

PATIENT
  Age: 71 Year
  Sex: Male

DRUGS (9)
  1. NOVOLIN N [Concomitant]
  2. ACCUPRIL [Concomitant]
     Dosage: 10MG PER DAY
  3. REQUIP [Suspect]
     Indication: PRODUCT USED FOR UNKNOWN INDICATION
     Dosage: .5MG AT NIGHT
     Route: 065
     Dates: start: 20110915
  4. SPIRIVA [Concomitant]
     Dosage: 1PUFF PER DAY
  5. NORVASC [Concomitant]
     Dosage: 10MG PER DAY
  6. METFORMIN HYDROCHLORIDE [Concomitant]
  7. NOVORAPID [Concomitant]
  8. ADVAIR DISKUS 100/50 [Concomitant]
     Dosage: 1PUFF TWICE PER DAY
  9. COREG [Concomitant]
     Dosage: 3.125MG TWICE PER DAY

REACTIONS (1)
  - HYPOGLYCAEMIA [None]
